FAERS Safety Report 9000980 (Version 1)
Quarter: 2013Q1

REPORT INFORMATION
  Report Type: Spontaneous
  Country: US (occurrence: None)
  Receive Date: 20130103
  Receipt Date: 20130103
  Transmission Date: 20140127
  Serious: Yes (Hospitalization, Other)
  Sender: FDA-Public Use
  Company Number: None

PATIENT
  Age: 52 Year
  Sex: Male
  Weight: 93.4 kg

DRUGS (2)
  1. REQUIP XL [Suspect]
     Indication: RESTLESS LEGS SYNDROME
     Dosage: REQUIP 5 MG TID PO
     Route: 048
     Dates: start: 20110204, end: 20120603
  2. REQUIP [Suspect]
     Dosage: REQUIP 6 MG XR TID PO
     Route: 048
     Dates: start: 20120604, end: 20121231

REACTIONS (5)
  - Abdominal pain [None]
  - Nausea [None]
  - Vomiting [None]
  - Syncope [None]
  - Cerebrovascular accident [None]
